FAERS Safety Report 6964006-0 (Version None)
Quarter: 2010Q3

REPORT INFORMATION
  Report Type: 
  Country: None (occurrence: None)
  Receive Date: 20100902
  Receipt Date: 20100902
  Transmission Date: 20110219
  Serious: Yes (Other)
  Sender: FDA-Public Use
  Company Number: None

PATIENT
  Age: 21 Year
  Sex: Female
  Weight: 46.7205 kg

DRUGS (1)
  1. PRISTIQ [Suspect]
     Indication: MAJOR DEPRESSION
     Dosage: 100MG 1X DAILY PO
     Route: 048
     Dates: start: 20100129, end: 20100831

REACTIONS (24)
  - ABDOMINAL PAIN UPPER [None]
  - ABNORMAL DREAMS [None]
  - ASTHENIA [None]
  - BALANCE DISORDER [None]
  - CONFUSIONAL STATE [None]
  - COORDINATION ABNORMAL [None]
  - DIARRHOEA [None]
  - DISTURBANCE IN ATTENTION [None]
  - DIZZINESS [None]
  - DRUG DOSE OMISSION [None]
  - EYE DISORDER [None]
  - FATIGUE [None]
  - INFLUENZA LIKE ILLNESS [None]
  - MIGRAINE [None]
  - NAUSEA [None]
  - PARAESTHESIA [None]
  - SENSORY DISTURBANCE [None]
  - SLEEP DISORDER [None]
  - SPEECH DISORDER [None]
  - TREMOR [None]
  - VERTIGO [None]
  - VISION BLURRED [None]
  - VOMITING [None]
  - WITHDRAWAL SYNDROME [None]
